FAERS Safety Report 14282698 (Version 2)
Quarter: 2018Q1

REPORT INFORMATION
  Report Type: Spontaneous
  Country: FR (occurrence: FR)
  Receive Date: 20171213
  Receipt Date: 20180103
  Transmission Date: 20180508
  Serious: Yes (Death, Other)
  Sender: FDA-Public Use
  Company Number: FR-JNJFOC-20171215707

PATIENT
  Sex: Male

DRUGS (2)
  1. YONDELIS [Suspect]
     Active Substance: TRABECTEDIN
     Indication: LIPOSARCOMA
     Dosage: 1.50 MG/M? C1 TOTAL DOSE 2.90 MG THE 09TH NOVEMBER
     Route: 042
  2. YONDELIS [Suspect]
     Active Substance: TRABECTEDIN
     Indication: LIPOSARCOMA
     Dosage: C2 THE 30/11 TOTAL DOSE OF 2.35
     Route: 042

REACTIONS (3)
  - Renal failure [Fatal]
  - Neutropenia [Unknown]
  - Blood creatine phosphokinase increased [Unknown]
